FAERS Safety Report 8454061-3 (Version None)
Quarter: 2012Q2

REPORT INFORMATION
  Report Type: 
  Country: None (occurrence: None)
  Receive Date: 20120323
  Receipt Date: 20110819
  Transmission Date: 20120825
  Serious: Yes (Other)
  Sender: FDA-Public Use
  Company Number: 163-21880-11082459

PATIENT
  Age: 71 Year
  Sex: Female

DRUGS (9)
  1. CRESTOR [Concomitant]
  2. DEXAMETHASONE [Concomitant]
  3. OMEPRAZOLE [Concomitant]
  4. ALBUTEROL SULFATE [Concomitant]
  5. VITAMIN A + D (VITAMIDYNE A AND D) [Concomitant]
  6. ADVAIR DISKUS 100/50 [Concomitant]
  7. AMLODIPINE BESYLATE [Concomitant]
  8. ASPIRIN [Concomitant]
  9. LENALIDOMIDE [Suspect]
     Indication: MULTIPLE MYELOMA
     Dosage: 25 MG, PO
     Route: 048
     Dates: start: 20110727

REACTIONS (1)
  - RECTAL HAEMORRHAGE [None]
